FAERS Safety Report 4679556-X (Version None)
Quarter: 2005Q2

REPORT INFORMATION
  Report Type: 
  Country: None (occurrence: None)
  Receive Date: 20050602
  Receipt Date: 20050524
  Transmission Date: 20051028
  Serious: Yes (Other)
  Sender: FDA-Public Use
  Company Number: 200514535US

PATIENT
  Sex: Female

DRUGS (1)
  1. PENLAC [Suspect]
     Dosage: DOSE: UNK

REACTIONS (1)
  - EMPHYSEMA [None]
